FAERS Safety Report 9537049 (Version 2)
Quarter: 2014Q1

REPORT INFORMATION
  Report Type: Spontaneous
  Country: US (occurrence: US)
  Receive Date: 20130919
  Receipt Date: 20140211
  Transmission Date: 20141002
  Serious: No
  Sender: FDA-Public Use
  Company Number: US-PFIZER INC-2013267371

PATIENT
  Age: 53 Year
  Sex: Female

DRUGS (11)
  1. AMOXICILLIN [Suspect]
     Dosage: UNK
  2. LIPITOR [Suspect]
     Dosage: UNK
  3. GABAPENTIN [Suspect]
     Dosage: UNK
  4. CECLOR [Suspect]
     Dosage: UNK
  5. CODEINE SULFATE [Suspect]
     Dosage: UNK
  6. CYMBALTA [Suspect]
     Dosage: UNK
  7. NEURONTIN [Suspect]
     Dosage: UNK
  8. LISINOPRIL [Suspect]
     Dosage: UNK
  9. PRAVACHOL [Suspect]
     Dosage: UNK
  10. PREDNISONE [Suspect]
     Dosage: UNK
  11. BACTRIM [Suspect]
     Dosage: UNK

REACTIONS (1)
  - Drug hypersensitivity [Unknown]
